FAERS Safety Report 18417504 (Version 2)
Quarter: 2021Q2

REPORT INFORMATION
  Report Type: Spontaneous
  Country: US (occurrence: US)
  Receive Date: 20201022
  Receipt Date: 20210423
  Transmission Date: 20210717
  Serious: No
  Sender: FDA-Public Use
  Company Number: 2020SGN02856

PATIENT
  Sex: Female

DRUGS (3)
  1. CAPECITABINE. [Concomitant]
     Active Substance: CAPECITABINE
     Indication: BREAST CANCER FEMALE
  2. HERCEPTIN [Concomitant]
     Active Substance: TRASTUZUMAB
     Indication: BREAST CANCER FEMALE
  3. TUKYSA [Suspect]
     Active Substance: TUCATINIB
     Indication: BREAST CANCER FEMALE
     Dosage: 200 MG, BID
     Route: 048

REACTIONS (13)
  - Constipation [Not Recovered/Not Resolved]
  - Blood bilirubin increased [Unknown]
  - Abdominal discomfort [Unknown]
  - Fatigue [Unknown]
  - Hypoacusis [Unknown]
  - Pruritus [Unknown]
  - Taste disorder [Unknown]
  - Insomnia [Unknown]
  - Headache [Unknown]
  - Product dose omission issue [Unknown]
  - Excessive cerumen production [Unknown]
  - Asthenia [Unknown]
  - Abdominal pain upper [Unknown]
